APPROVED DRUG PRODUCT: DIDRONEL
Active Ingredient: ETIDRONATE DISODIUM
Strength: 50MG/ML
Dosage Form/Route: INJECTABLE;INJECTION
Application: N019545 | Product #001
Applicant: MGI PHARMA INC
Approved: Apr 20, 1987 | RLD: No | RS: No | Type: DISCN